FAERS Safety Report 20085470 (Version 1)
Quarter: 2021Q4

REPORT INFORMATION
  Report Type: Spontaneous
  Country: JP (occurrence: JP)
  Receive Date: 20211118
  Receipt Date: 20211118
  Transmission Date: 20220303
  Serious: Yes (Death, Other)
  Sender: FDA-Public Use
  Company Number: JP-NBI-S202100365BIPI

PATIENT
  Age: 61 Year
  Sex: Female
  Weight: 37.4 kg

DRUGS (2)
  1. GILOTRIF [Suspect]
     Active Substance: AFATINIB
     Indication: Lung adenocarcinoma
     Route: 065
  2. GILOTRIF [Suspect]
     Active Substance: AFATINIB
     Route: 065

REACTIONS (2)
  - Malignant neoplasm progression [Fatal]
  - Diarrhoea [Unknown]
